FAERS Safety Report 12949028 (Version 4)
Quarter: 2017Q2

REPORT INFORMATION
  Report Type: Spontaneous
  Country: US (occurrence: US)
  Receive Date: 20161117
  Receipt Date: 20170508
  Transmission Date: 20170830
  Serious: No
  Sender: FDA-Public Use
  Company Number: US-ALEXION PHARMACEUTICALS INC.-A201608779

PATIENT
  Sex: Female

DRUGS (2)
  1. STRENSIQ [Suspect]
     Active Substance: ASFOTASE ALFA
     Dosage: 2 MG/KG, TIW
     Route: 058
  2. STRENSIQ [Suspect]
     Active Substance: ASFOTASE ALFA
     Indication: HYPOPHOSPHATASIA
     Dosage: 2 MG/KG, TIW
     Route: 058

REACTIONS (7)
  - Injection site reaction [Not Recovered/Not Resolved]
  - Injection site bruising [Unknown]
  - Injection site mass [Unknown]
  - Injection site swelling [Not Recovered/Not Resolved]
  - Injection site warmth [Not Recovered/Not Resolved]
  - Metatarsalgia [Not Recovered/Not Resolved]
  - Injection site erythema [Not Recovered/Not Resolved]

NARRATIVE: CASE EVENT DATE: 20161104
